FAERS Safety Report 8487513-0 (Version None)
Quarter: 2012Q3

REPORT INFORMATION
  Report Type: 
  Country: None (occurrence: None)
  Receive Date: 20120705
  Receipt Date: 20120621
  Transmission Date: 20120928
  Serious: Yes (Hospitalization, Other)
  Sender: FDA-Public Use
  Company Number: FI-VERTEX PHARMACEUTICALS INC.-000000000000000998

PATIENT
  Age: 57 Year
  Sex: Female

DRUGS (3)
  1. PEGASYS [Concomitant]
     Indication: HEPATITIS C
     Route: 058
     Dates: start: 20111202
  2. INCIVO [Suspect]
     Indication: HEPATITIS C
     Dosage: DOSAGE FORM: TABLET
     Route: 048
     Dates: start: 20120313, end: 20120522
  3. COPEGUS [Concomitant]
     Indication: HEPATITIS C
     Dates: start: 20111202

REACTIONS (7)
  - LEUKOPENIA [None]
  - RASH GENERALISED [None]
  - SWELLING FACE [None]
  - ERYSIPELAS [None]
  - PYREXIA [None]
  - RASH ERYTHEMATOUS [None]
  - ACNE [None]
